FAERS Safety Report 10240955 (Version 1)
Quarter: 2014Q2

REPORT INFORMATION
  Report Type: Spontaneous
  Country: GB (occurrence: GB)
  Receive Date: 20140617
  Receipt Date: 20140617
  Transmission Date: 20141212
  Serious: Yes (Disabling, Other)
  Sender: FDA-Public Use
  Company Number: GB-JNJFOC-20140604173

PATIENT
  Age: 28 Year
  Sex: Female
  Weight: 101.6 kg

DRUGS (3)
  1. NORETHISTERONE [Suspect]
     Indication: MENSTRUAL DISORDER
     Route: 048
     Dates: start: 201209, end: 20140512
  2. NAPROXEN [Concomitant]
     Route: 065
  3. ORAMORPH [Concomitant]
     Route: 065

REACTIONS (2)
  - Blindness [Not Recovered/Not Resolved]
  - Headache [Not Recovered/Not Resolved]
